FAERS Safety Report 13904841 (Version 1)
Quarter: 2017Q3

REPORT INFORMATION
  Report Type: Spontaneous
  Country: US (occurrence: US)
  Receive Date: 20170824
  Receipt Date: 20170824
  Transmission Date: 20171127
  Serious: Yes (Hospitalization)
  Sender: FDA-Public Use
  Company Number: None

PATIENT
  Age: 53 Year
  Sex: Female
  Weight: 49.5 kg

DRUGS (1)
  1. KLONAZEPAM [Suspect]
     Active Substance: CLONAZEPAM
     Indication: ANXIETY
     Route: 048

REACTIONS (11)
  - Fall [None]
  - Balance disorder [None]
  - Drug ineffective [None]
  - Rotator cuff syndrome [None]
  - Tendon rupture [None]
  - Breast cancer female [None]
  - Migraine [None]
  - Humerus fracture [None]
  - Gait disturbance [None]
  - Memory impairment [None]
  - Constipation [None]

NARRATIVE: CASE EVENT DATE: 20170812
